FAERS Safety Report 4587950-0 (Version None)
Quarter: 2005Q1

REPORT INFORMATION
  Report Type: 
  Country: None (occurrence: None)
  Receive Date: 20050214
  Receipt Date: 20050131
  Transmission Date: 20050727
  Serious: Yes (Death, Hospitalization)
  Sender: FDA-Public Use
  Company Number: 9944

PATIENT
  Age: 75 Year
  Sex: Male

DRUGS (5)
  1. DOXORUBICIN HCL [Suspect]
     Dosage: IV
     Route: 042
     Dates: start: 20040825
  2. VINCRISTINE [Suspect]
     Dosage: IV
     Route: 042
     Dates: start: 20040825
  3. RITUXIMAB [Suspect]
     Dosage: 25-AUG-2004
  4. CYCLOPHOSPHAMIDE [Suspect]
     Dates: start: 20040825
  5. PREDNISOLONE [Concomitant]

REACTIONS (9)
  - ANAEMIA [None]
  - ASTHENIA [None]
  - BLOOD ALBUMIN INCREASED [None]
  - CREPITATIONS [None]
  - ILL-DEFINED DISORDER [None]
  - INFUSION RELATED REACTION [None]
  - MALAISE [None]
  - NEUTROPENIC SEPSIS [None]
  - OEDEMA [None]
